FAERS Safety Report 9055801 (Version 2)
Quarter: 2013Q4

REPORT INFORMATION
  Report Type: Spontaneous
  Country: JP (occurrence: JP)
  Receive Date: 20130206
  Receipt Date: 20131018
  Transmission Date: 20140711
  Serious: Yes (Other)
  Sender: FDA-Public Use
  Company Number: JP-PFIZER INC-2013009704

PATIENT
  Age: 54 Year
  Sex: Female

DRUGS (1)
  1. SOLU-MEDROL [Suspect]
     Dosage: 500 MG, UNK
     Route: 042
     Dates: start: 200803, end: 201203

REACTIONS (1)
  - Osteonecrosis [Unknown]
